FAERS Safety Report 15254108 (Version 1)
Quarter: 2018Q3

REPORT INFORMATION
  Report Type: Spontaneous
  Country: US (occurrence: US)
  Receive Date: 20180717
  Receipt Date: 20180717
  Transmission Date: 20181010
  Serious: Yes (Hospitalization)
  Sender: FDA-Public Use
  Company Number: None

PATIENT
  Age: 51 Year
  Sex: Male

DRUGS (1)
  1. WARFARIN [Suspect]
     Active Substance: WARFARIN
     Indication: DEEP VEIN THROMBOSIS
     Route: 048

REACTIONS (4)
  - Pain in extremity [None]
  - Anticoagulation drug level below therapeutic [None]
  - Blood urine present [None]
  - Peripheral swelling [None]

NARRATIVE: CASE EVENT DATE: 20180310
